FAERS Safety Report 8283951-X (Version None)
Quarter: 2012Q2

REPORT INFORMATION
  Report Type: 
  Country: None (occurrence: None)
  Receive Date: 20120413
  Receipt Date: 20120410
  Transmission Date: 20120825
  Serious: Yes (Hospitalization, Other)
  Sender: FDA-Public Use
  Company Number: PHHY2012BR015687

PATIENT
  Age: 47 Year
  Sex: Male

DRUGS (9)
  1. MEROPENEM [Concomitant]
  2. FLUCONAZOLE [Suspect]
     Dosage: 200 MG, QD
     Route: 048
  3. TRETINOIN [Suspect]
     Route: 048
  4. AMPHOTERICIN B [Suspect]
     Dosage: 30 MG, QD
  5. MITOXANTRONE [Concomitant]
     Route: 048
  6. CEFEPIME [Suspect]
     Indication: FEBRILE NEUTROPENIA
     Dosage: 2 G, QD
     Route: 042
  7. CYTARABINE [Concomitant]
     Route: 048
  8. DIPYRONE TAB [Concomitant]
     Indication: FEBRILE NEUTROPENIA
     Route: 042
  9. DEXAMETHASONE [Concomitant]

REACTIONS (18)
  - URINE OUTPUT DECREASED [None]
  - OLIGURIA [None]
  - ORAL DISORDER [None]
  - MOUTH ULCERATION [None]
  - PYREXIA [None]
  - HYPOKALAEMIA [None]
  - BLOOD CREATININE INCREASED [None]
  - HAEMATURIA [None]
  - DYSPNOEA [None]
  - HAEMOGLOBINURIA [None]
  - RENAL FAILURE ACUTE [None]
  - BLOOD UREA INCREASED [None]
  - ASTHENIA [None]
  - HEPATOMEGALY [None]
  - DIARRHOEA [None]
  - PROTEINURIA [None]
  - RESPIRATORY TRACT HAEMORRHAGE [None]
  - WEIGHT INCREASED [None]
